FAERS Safety Report 24735848 (Version 1)
Quarter: 2024Q4

REPORT INFORMATION
  Report Type: Spontaneous
  Country: US (occurrence: US)
  Receive Date: 20241216
  Receipt Date: 20241216
  Transmission Date: 20250115
  Serious: Yes (Other)
  Sender: Kenvue
  Company Number: US-KENVUE CANADA INC.-20241202282

PATIENT

DRUGS (4)
  1. DIPHENHYDRAMINE HYDROCHLORIDE [Suspect]
     Active Substance: DIPHENHYDRAMINE HYDROCHLORIDE
     Indication: Product used for unknown indication
     Route: 048
  2. DIPHENHYDRAMINE HYDROCHLORIDE [Suspect]
     Active Substance: DIPHENHYDRAMINE HYDROCHLORIDE
     Dosage: UNK
     Route: 065
  3. DEXTROMETHORPHAN HYDROBROMIDE [Suspect]
     Active Substance: DEXTROMETHORPHAN HYDROBROMIDE
     Indication: Product used for unknown indication
     Route: 065
  4. CANNABIS SATIVA SUBSP. INDICA TOP [Suspect]
     Active Substance: CANNABIS SATIVA SUBSP. INDICA TOP
     Indication: Product used for unknown indication
     Route: 065

REACTIONS (16)
  - Drug abuse [Unknown]
  - Hallucination, visual [Unknown]
  - Hallucination, auditory [Unknown]
  - Hangover [Unknown]
  - Panic attack [Unknown]
  - Dysphoria [Unknown]
  - Feeling abnormal [Unknown]
  - Libido increased [Unknown]
  - Language disorder [Unknown]
  - Memory impairment [Unknown]
  - Anxiety [Unknown]
  - Intentional product misuse [Unknown]
  - Somnolence [Unknown]
  - Confusional state [Unknown]
  - Toxicity to various agents [Unknown]
  - Somnolence [Unknown]
